FAERS Safety Report 6923274-1 (Version None)
Quarter: 2010Q3

REPORT INFORMATION
  Report Type: 
  Country: None (occurrence: None)
  Receive Date: 20100813
  Receipt Date: 20100805
  Transmission Date: 20110219
  Serious: Yes (Death)
  Sender: FDA-Public Use
  Company Number: JP-ROCHE-719973

PATIENT
  Age: 61 Year
  Sex: Male

DRUGS (3)
  1. CAPECITABINE [Suspect]
     Indication: RECTAL CANCER
     Dosage: 2 WEEKS ADMINISTRATION FOLLOWED BY 1 WEEK REST
     Route: 048
     Dates: start: 20100528, end: 20100722
  2. BEVACIZUMAB [Suspect]
     Indication: RECTAL CANCER
     Route: 041
     Dates: start: 20100618, end: 20100709
  3. OXALIPLATIN [Suspect]
     Indication: RECTAL CANCER
     Route: 041
     Dates: start: 20100528, end: 20100709

REACTIONS (1)
  - GASTROINTESTINAL HAEMORRHAGE [None]
